FAERS Safety Report 7995232-X (Version None)
Quarter: 2011Q4

REPORT INFORMATION
  Report Type: 
  Country: None (occurrence: None)
  Receive Date: 20111220
  Receipt Date: 20111220
  Transmission Date: 20120403
  Serious: No
  Sender: FDA-Public Use
  Company Number: None

PATIENT
  Age: 33 Year
  Sex: Female
  Weight: 86.182 kg

DRUGS (1)
  1. ABILIFY [Suspect]
     Indication: BIPOLAR II DISORDER
     Dosage: ONE TABLET
     Route: 048
     Dates: start: 20110221, end: 20111024

REACTIONS (2)
  - ACTIVITIES OF DAILY LIVING IMPAIRED [None]
  - TREMOR [None]
